FAERS Safety Report 8812393 (Version 1)
Quarter: 2012Q4

REPORT INFORMATION
  Report Type: 
  Country: US (occurrence: US)
  Receive Date: 20120927
  Receipt Date: 20120927
  Transmission Date: 20130627
  Serious: Yes (Hospitalization, Other)
  Sender: FDA-Public Use
  Company Number: US-JNJFOC-20120206041

PATIENT
  Age: 46 Year
  Sex: Female
  Weight: 115.21 kg

DRUGS (5)
  1. TYLENOL SINUS CONGESTION + PAIN DAYTIME COOL BURST [Suspect]
     Indication: MULTIPLE ALLERGIES
     Route: 048
  2. TYLENOL SINUS CONGESTION + PAIN DAYTIME COOL BURST [Suspect]
     Indication: ASTHMA
     Route: 048
  3. EXTRA STRENGTH TYLENOL [Suspect]
     Indication: DYSMENORRHOEA
     Dosage: for 5 consecutive days monthly
     Route: 048
  4. ALBUTEROL [Concomitant]
     Indication: ASTHMA
  5. PRESCRIPTION MEDICATIONS UNSPECIFIED [Concomitant]
     Indication: GASTRITIS

REACTIONS (8)
  - Dehydration [Unknown]
  - Vomiting [Not Recovered/Not Resolved]
  - Gastrooesophageal reflux disease [Not Recovered/Not Resolved]
  - Diarrhoea [Not Recovered/Not Resolved]
  - Musculoskeletal chest pain [Unknown]
  - Nausea [Not Recovered/Not Resolved]
  - Dyspepsia [Not Recovered/Not Resolved]
  - Dysphagia [Not Recovered/Not Resolved]
